FAERS Safety Report 21251238 (Version 1)
Quarter: 2022Q3

REPORT INFORMATION
  Report Type: Spontaneous
  Country: BR (occurrence: BR)
  Receive Date: 20220825
  Receipt Date: 20220825
  Transmission Date: 20221026
  Serious: Yes (Life-Threatening)
  Sender: FDA-Public Use
  Company Number: BR-JNJFOC-20220839197

PATIENT
  Age: 46 Year
  Sex: Male

DRUGS (3)
  1. SIMPONI [Suspect]
     Active Substance: GOLIMUMAB
     Indication: Psoriatic arthropathy
     Route: 058
     Dates: start: 20220602
  2. SIMPONI [Suspect]
     Active Substance: GOLIMUMAB
  3. PREDNISONE [Concomitant]
     Active Substance: PREDNISONE
     Indication: Arthritis
     Route: 048
     Dates: start: 20220324

REACTIONS (1)
  - Thrombocytopenic purpura [Not Recovered/Not Resolved]

NARRATIVE: CASE EVENT DATE: 20220802
